FAERS Safety Report 20872590 (Version 2)
Quarter: 2022Q2

REPORT INFORMATION
  Report Type: Report from Study
  Country: DE (occurrence: DE)
  Receive Date: 20220525
  Receipt Date: 20220607
  Transmission Date: 20220720
  Serious: Yes (Other)
  Sender: FDA-Public Use
  Company Number: DE-BAYER-2022A073587

PATIENT
  Age: 40 Year
  Sex: Female

DRUGS (1)
  1. MIRENA [Suspect]
     Active Substance: LEVONORGESTREL
     Indication: Contraception
     Dosage: 20?G/DAY
     Route: 015
     Dates: start: 201909, end: 20210126

REACTIONS (4)
  - Suicide attempt [None]
  - Depression [None]
  - Weight increased [None]
  - Generalised anxiety disorder [None]

NARRATIVE: CASE EVENT DATE: 20200901
